FAERS Safety Report 20855760 (Version 1)
Quarter: 2022Q2

REPORT INFORMATION
  Report Type: Spontaneous
  Country: US (occurrence: None)
  Receive Date: 20220520
  Receipt Date: 20220520
  Transmission Date: 20220721
  Serious: No
  Sender: FDA-Public Use
  Company Number: None

PATIENT
  Age: 8 Month
  Sex: Female

DRUGS (1)
  1. SILDENAFIL [Suspect]
     Active Substance: SILDENAFIL
     Indication: Pulmonary arterial hypertension
     Dosage: OTHER FREQUENCY : EVERY 8 HOURS;?
     Route: 048
     Dates: start: 20220309

REACTIONS (3)
  - Therapy interrupted [None]
  - Catheterisation cardiac [None]
  - Product distribution issue [None]

NARRATIVE: CASE EVENT DATE: 20220520
